FAERS Safety Report 20485267 (Version 2)
Quarter: 2022Q1

REPORT INFORMATION
  Report Type: Spontaneous
  Country: US (occurrence: US)
  Receive Date: 20220217
  Receipt Date: 20220301
  Transmission Date: 20220423
  Serious: Yes (Death, Life-Threatening, Hospitalization, Other)
  Sender: FDA-Public Use
  Company Number: US-MLMSERVICE-20220208-3363927-1

PATIENT
  Age: 57 Year
  Sex: Male

DRUGS (10)
  1. DEXAMETHASONE [Suspect]
     Active Substance: DEXAMETHASONE
     Indication: COVID-19 treatment
     Dosage: 6 MG, QD
     Route: 048
     Dates: start: 202101, end: 2021
  2. HYDROCORTISONE [Suspect]
     Active Substance: HYDROCORTISONE
     Indication: COVID-19 treatment
     Dosage: 100 MG, TID
     Route: 042
     Dates: start: 2021
  3. METHYLPREDNISOLONE [Suspect]
     Active Substance: METHYLPREDNISOLONE
     Indication: COVID-19 treatment
     Dosage: 40 MG, TID
     Route: 042
     Dates: start: 2021, end: 2021
  4. AZITHROMYCIN [Concomitant]
     Active Substance: AZITHROMYCIN
     Indication: Staphylococcal infection
     Dosage: 500 MG, QD
     Route: 042
     Dates: start: 202101, end: 2021
  5. CEFTRIAXONE [Concomitant]
     Active Substance: CEFTRIAXONE
     Indication: Staphylococcal infection
     Dosage: 1 G, QD
     Dates: start: 202101, end: 2021
  6. VANCOMYCIN [Concomitant]
     Active Substance: VANCOMYCIN
     Indication: Evidence based treatment
     Dosage: UNK
     Dates: start: 2021, end: 2021
  7. MEROPENEM [Concomitant]
     Active Substance: MEROPENEM
     Indication: Evidence based treatment
     Dosage: UNK
     Dates: start: 2021, end: 2021
  8. MIDODRINE [Concomitant]
     Active Substance: MIDODRINE
     Indication: COVID-19 treatment
     Dosage: 10 MG, TID
     Dates: start: 2021
  9. REMDESIVIR [Concomitant]
     Active Substance: REMDESIVIR
     Indication: COVID-19 treatment
     Dosage: UNK
     Route: 042
  10. OXYGEN [Concomitant]
     Active Substance: OXYGEN
     Indication: COVID-19 treatment
     Dosage: NON-REBREATHER MASK
     Route: 055

REACTIONS (7)
  - Cryptococcosis [Fatal]
  - Disseminated cryptococcosis [Fatal]
  - Skin mass [Fatal]
  - Cryptococcal meningoencephalitis [Fatal]
  - Colitis [Unknown]
  - Candida infection [Unknown]
  - Diarrhoea [Unknown]

NARRATIVE: CASE EVENT DATE: 20210101
